FAERS Safety Report 9417990 (Version 1)
Quarter: 2013Q3

REPORT INFORMATION
  Report Type: Spontaneous
  Country: US (occurrence: US)
  Receive Date: 20130724
  Receipt Date: 20130724
  Transmission Date: 20140515
  Serious: No
  Sender: FDA-Public Use
  Company Number: US-BAUSCH-BL-2012-000660

PATIENT
  Sex: Female

DRUGS (1)
  1. OPCON-A [Suspect]
     Indication: EYE ALLERGY
     Dosage: 1 DROP IN LEFT EYE; AS REQUIRED
     Route: 047
     Dates: start: 2010

REACTIONS (2)
  - Incorrect dose administered [Unknown]
  - Mydriasis [Not Recovered/Not Resolved]
